FAERS Safety Report 21759259 (Version 1)
Quarter: 2022Q4

REPORT INFORMATION
  Report Type: Spontaneous
  Country: US (occurrence: US)
  Receive Date: 20221221
  Receipt Date: 20221221
  Transmission Date: 20230113
  Serious: No
  Sender: FDA-Public Use
  Company Number: US-LEO Pharma-347837

PATIENT
  Sex: Male

DRUGS (1)
  1. ADBRY [Suspect]
     Active Substance: TRALOKINUMAB-LDRM
     Indication: Product used for unknown indication
     Dosage: DOSAGE : 300 MG SUBCUTANEOUSLY EVERY TWO WEEKS
     Route: 058
     Dates: start: 202209

REACTIONS (2)
  - Eye pruritus [Unknown]
  - Ocular hyperaemia [Unknown]
